FAERS Safety Report 5273652-4 (Version None)
Quarter: 2007Q1

REPORT INFORMATION
  Report Type: 
  Country: None (occurrence: None)
  Receive Date: 20061219
  Receipt Date: 20060928
  Transmission Date: 20070707
  Serious: Yes (Other)
  Sender: FDA-Public Use
  Company Number: US-JNJFOC-20061000716

PATIENT
  Age: 38 Year
  Sex: Female
  Weight: 132.9039 kg

DRUGS (2)
  1. ORTHO EVRA [Suspect]
     Indication: MENSTRUATION IRREGULAR
     Dosage: 1 IN 1 WEEK, TRANSDERMAL
     Route: 062
     Dates: start: 20030821
  2. ZOMIG [Concomitant]

REACTIONS (2)
  - PULMONARY EMBOLISM [None]
  - THROMBOPHLEBITIS [None]
